FAERS Safety Report 5016607-7 (Version None)
Quarter: 2006Q2

REPORT INFORMATION
  Report Type: 
  Country: None (occurrence: None)
  Receive Date: 20060602
  Receipt Date: 20060530
  Transmission Date: 20061013
  Serious: Yes (Other)
  Sender: FDA-Public Use
  Company Number: US-GLAXOSMITHKLINE-A0607275A

PATIENT
  Age: 39 Year
  Sex: Female

DRUGS (4)
  1. LAMICTAL [Suspect]
     Indication: BIPOLAR DISORDER
     Dosage: 200MG PER DAY
     Route: 048
  2. FLUCONAZOLE [Suspect]
     Route: 048
     Dates: start: 20060526, end: 20060528
  3. SYNTHROID [Concomitant]
  4. PHENTERMINE [Concomitant]

REACTIONS (4)
  - MAJOR DEPRESSION [None]
  - ORAL CANDIDIASIS [None]
  - PARANOIA [None]
  - SUICIDAL IDEATION [None]
